FAERS Safety Report 15833008 (Version 1)
Quarter: 2019Q1

REPORT INFORMATION
  Report Type: Spontaneous
  Country: US (occurrence: US)
  Receive Date: 20190111
  Receipt Date: 20190111
  Transmission Date: 20190417
  Serious: No
  Sender: FDA-Public Use
  Company Number: None

PATIENT

DRUGS (1)
  1. ENBREL [Suspect]
     Active Substance: ETANERCEPT
     Indication: RHEUMATOID ARTHRITIS
     Dates: start: 2016

REACTIONS (4)
  - Blood pressure increased [None]
  - Feeling abnormal [None]
  - Blood potassium decreased [None]
  - Mental impairment [None]

NARRATIVE: CASE EVENT DATE: 20190111
